FAERS Safety Report 8389486-8 (Version None)
Quarter: 2012Q2

REPORT INFORMATION
  Report Type: 
  Country: None (occurrence: None)
  Receive Date: 20120528
  Receipt Date: 20120523
  Transmission Date: 20120825
  Serious: Yes (Hospitalization)
  Sender: FDA-Public Use
  Company Number: BE-AMGEN-BELSP2012001753

PATIENT
  Age: 79 Year
  Sex: Female
  Weight: 41 kg

DRUGS (12)
  1. RITUXIMAB [Concomitant]
     Indication: DIFFUSE LARGE B-CELL LYMPHOMA
     Dosage: 506.25 MG, UNK
     Route: 042
     Dates: start: 20110715
  2. PEGFILGRASTIM [Suspect]
     Indication: DIFFUSE LARGE B-CELL LYMPHOMA
     Dosage: 6 MG, UNK
     Route: 058
     Dates: start: 20110718
  3. DOXORUBICIN HCL [Concomitant]
     Indication: DIFFUSE LARGE B-CELL LYMPHOMA
     Dosage: 67.5 MG, UNK
     Route: 042
     Dates: start: 20110715
  4. DIFLUCAN [Concomitant]
     Indication: ANTIFUNGAL TREATMENT
     Dosage: 200 MG, UNK
     Route: 048
     Dates: start: 20110714
  5. VINCRISTINE [Concomitant]
     Indication: DIFFUSE LARGE B-CELL LYMPHOMA
     Dosage: 1.89 MG, UNK
     Route: 042
     Dates: start: 20110715
  6. CYCLOPHOSPHAMIDE [Concomitant]
     Indication: DIFFUSE LARGE B-CELL LYMPHOMA
     Dosage: 1012.5 MG, UNK
     Route: 042
     Dates: start: 20110715
  7. FRAXIPARINE [Concomitant]
     Dosage: UNK
     Route: 058
     Dates: start: 20110708
  8. HYDROCORTISONE [Concomitant]
     Indication: ADRENAL INSUFFICIENCY
     Dosage: UNK
     Route: 048
     Dates: start: 20110725
  9. ACYCLOVIR [Concomitant]
     Indication: ANTIVIRAL TREATMENT
     Dosage: 800 MG, UNK
     Route: 048
     Dates: start: 20110714, end: 20110723
  10. ALLOPURINOL [Concomitant]
     Indication: TUMOUR LYSIS SYNDROME
     Dosage: 300 MG, UNK
     Dates: start: 20110714
  11. PREDNISONE TAB [Concomitant]
     Indication: DIFFUSE LARGE B-CELL LYMPHOMA
     Dosage: 320 MG, UNK
     Route: 048
     Dates: start: 20110715
  12. COTRIM [Concomitant]
     Indication: ANTI-INFECTIVE THERAPY
     Dosage: 480 MG, UNK
     Route: 048
     Dates: start: 20110714

REACTIONS (2)
  - FEBRILE NEUTROPENIA [None]
  - NAUSEA [None]
